FAERS Safety Report 12519350 (Version 1)
Quarter: 2016Q2

REPORT INFORMATION
  Report Type: Spontaneous
  Country: RU (occurrence: RU)
  Receive Date: 20160630
  Receipt Date: 20160630
  Transmission Date: 20160815
  Serious: Yes (Hospitalization)
  Sender: FDA-Public Use
  Company Number: RU-BAYER-2016-118678

PATIENT
  Age: 27 Year
  Sex: Female

DRUGS (4)
  1. YARINA PLUS [Suspect]
     Active Substance: DROSPIRENONE\ETHINYL ESTRADIOL\LEVOMEFOLATE CALCIUM
     Indication: CONTRACEPTION
     Dosage: 1 DF, UNK
     Route: 048
     Dates: start: 20160219, end: 20160317
  2. YARINA PLUS [Suspect]
     Active Substance: DROSPIRENONE\ETHINYL ESTRADIOL\LEVOMEFOLATE CALCIUM
     Indication: CONTRACEPTION
     Dosage: 1 UNK, UNK
     Route: 048
     Dates: start: 20160415, end: 20160512
  3. YARINA PLUS [Suspect]
     Active Substance: DROSPIRENONE\ETHINYL ESTRADIOL\LEVOMEFOLATE CALCIUM
     Indication: MENORRHAGIA
     Dosage: 1 UNK, UNK
     Route: 048
     Dates: start: 20160318, end: 20160414
  4. YARINA PLUS [Suspect]
     Active Substance: DROSPIRENONE\ETHINYL ESTRADIOL\LEVOMEFOLATE CALCIUM
     Indication: CONTRACEPTION
     Dosage: 1 UNK, UNK
     Route: 048
     Dates: start: 20160513

REACTIONS (7)
  - Dizziness [None]
  - Nausea [None]
  - Asthenia [None]
  - Drug ineffective [None]
  - Ectopic pregnancy under hormonal contraception [None]
  - Abdominal pain lower [None]
  - Abdominal tenderness [None]

NARRATIVE: CASE EVENT DATE: 20160219
